FAERS Safety Report 24123234 (Version 1)
Quarter: 2024Q3

REPORT INFORMATION
  Report Type: Spontaneous
  Country: US (occurrence: US)
  Receive Date: 20240723
  Receipt Date: 20240723
  Transmission Date: 20241017
  Serious: No
  Sender: OTSUKA
  Company Number: US-OTSUKA-2023_021766

PATIENT
  Age: 80 Year
  Sex: Female

DRUGS (1)
  1. REXULTI [Suspect]
     Active Substance: BREXPIPRAZOLE
     Indication: Major depression
     Dosage: 2 MG
     Route: 048

REACTIONS (3)
  - Somnambulism [Recovered/Resolved]
  - Peripheral swelling [Recovered/Resolved]
  - Drug dose titration not performed [Unknown]
